FAERS Safety Report 11319245 (Version 1)
Quarter: 2015Q3

REPORT INFORMATION
  Report Type: Spontaneous
  Country: US (occurrence: None)
  Receive Date: 20150727
  Receipt Date: 20150727
  Transmission Date: 20151125
  Serious: No
  Sender: FDA-Public Use
  Company Number: 15AE034

PATIENT
  Sex: Female

DRUGS (1)
  1. EQUATE IBUPROFEN [Suspect]
     Active Substance: IBUPROFEN
     Indication: ABDOMINAL PAIN
     Dosage: 49035-912-08

REACTIONS (4)
  - Faeces discoloured [None]
  - Abdominal pain upper [None]
  - Faecal incontinence [None]
  - Diarrhoea [None]
